FAERS Safety Report 9740049 (Version 2)
Quarter: 2013Q4

REPORT INFORMATION
  Report Type: Report from Study
  Country: US (occurrence: US)
  Receive Date: 20131209
  Receipt Date: 20131209
  Transmission Date: 20140711
  Serious: Yes (Hospitalization)
  Sender: FDA-Public Use
  Company Number: US-PFIZER INC-2012271808

PATIENT
  Age: 64 Year
  Sex: Male
  Weight: 72 kg

DRUGS (5)
  1. FLUOROURACIL [Suspect]
     Indication: COLON CANCER
     Dosage: 400MG/M2 IVP ON DAY 1
     Dates: start: 20121015, end: 20121017
  2. FLUOROURACIL [Suspect]
     Dosage: 2400 MG/M2, OVER 46-48 HOURS ON DAY 1
     Route: 042
     Dates: start: 20121015, end: 20121017
  3. NO SUBJECT DRUG [Suspect]
     Dosage: NO DOSE GIVEN
  4. LEUCOVORIN CALCIUM [Concomitant]
     Indication: ADENOCARCINOMA OF COLON
     Dosage: 400 MG/M2, OVER 2 HOURS ON DAY 1
     Route: 042
     Dates: start: 20121015, end: 20121015
  5. ELOXATIN [Concomitant]
     Indication: ADENOCARCINOMA OF COLON
     Dosage: 85MG/M2, OVER 2 HOURS ON DAY 1
     Route: 042
     Dates: start: 20121015, end: 20121015

REACTIONS (2)
  - Left ventricular dysfunction [Not Recovered/Not Resolved]
  - Arteriospasm coronary [Recovered/Resolved with Sequelae]
